FAERS Safety Report 20818491 (Version 3)
Quarter: 2023Q1

REPORT INFORMATION
  Report Type: Spontaneous
  Country: US (occurrence: US)
  Receive Date: 20220512
  Receipt Date: 20230123
  Transmission Date: 20230417
  Serious: Yes (Hospitalization, Other)
  Sender: FDA-Public Use
  Company Number: US-PFIZER INC-202200131476

PATIENT
  Age: 57 Year
  Sex: Male

DRUGS (1)
  1. XELJANZ [Suspect]
     Active Substance: TOFACITINIB CITRATE
     Dosage: 5 MG
     Dates: start: 20180101

REACTIONS (7)
  - Rheumatoid arthritis [Unknown]
  - Malaise [Unknown]
  - Pain [Unknown]
  - COVID-19 [Unknown]
  - Illness [Unknown]
  - Nasopharyngitis [Unknown]
  - Influenza [Unknown]
